FAERS Safety Report 13510561 (Version 1)
Quarter: 2017Q2

REPORT INFORMATION
  Report Type: Spontaneous
  Country: DE (occurrence: DE)
  Receive Date: 20170503
  Receipt Date: 20170503
  Transmission Date: 20170830
  Serious: Yes (Other)
  Sender: FDA-Public Use
  Company Number: DE-MERCK KGAA-2020181

PATIENT
  Sex: Female

DRUGS (3)
  1. NOVOTHYROX [Suspect]
     Active Substance: LEVOTHYROXINE SODIUM
     Indication: AUTOIMMUNE THYROIDITIS
     Dates: start: 201701
  2. NOVOTHYROX [Suspect]
     Active Substance: LEVOTHYROXINE SODIUM
     Dates: start: 20170419
  3. NOVOTHYROX [Suspect]
     Active Substance: LEVOTHYROXINE SODIUM

REACTIONS (6)
  - Coeliac disease [Unknown]
  - Eyelid oedema [Not Recovered/Not Resolved]
  - Fatigue [Not Recovered/Not Resolved]
  - Panic attack [Unknown]
  - Listless [Not Recovered/Not Resolved]
  - Restlessness [Unknown]
